FAERS Safety Report 7550917-4 (Version None)
Quarter: 2011Q2

REPORT INFORMATION
  Report Type: 
  Country: None (occurrence: None)
  Receive Date: 20110609
  Receipt Date: 20110525
  Transmission Date: 20111010
  Serious: No
  Sender: FDA-Public Use
  Company Number: C-11-0130-W

PATIENT
  Age: 30 Year
  Sex: Female

DRUGS (1)
  1. CEFTRIAXON [Suspect]
     Dosage: SINGLE, INTRAMUSCULAR
     Route: 030
     Dates: start: 20110523

REACTIONS (5)
  - WRONG TECHNIQUE IN DRUG USAGE PROCESS [None]
  - TREMOR [None]
  - REFUSAL OF TREATMENT BY PATIENT [None]
  - CHILLS [None]
  - DIZZINESS [None]
